FAERS Safety Report 20948849 (Version 1)
Quarter: 2022Q2

REPORT INFORMATION
  Report Type: Spontaneous
  Country: US (occurrence: US)
  Receive Date: 20220612
  Receipt Date: 20220612
  Transmission Date: 20220721
  Serious: Yes (Death, Other)
  Sender: FDA-Public Use
  Company Number: US-BRISTOL-MYERS SQUIBB COMPANY-2022-055365

PATIENT
  Age: 64 Year
  Sex: Female
  Weight: 60.15 kg

DRUGS (1)
  1. OPDIVO [Suspect]
     Active Substance: NIVOLUMAB
     Indication: Gallbladder cancer
     Dosage: DOSE : 240MG;     FREQ : EVERY 14 DAYS?2 VIALS
     Route: 042

REACTIONS (2)
  - Death [Fatal]
  - Intentional product use issue [Unknown]
